FAERS Safety Report 24802824 (Version 2)
Quarter: 2025Q1

REPORT INFORMATION
  Report Type: Spontaneous
  Country: US (occurrence: US)
  Receive Date: 20250103
  Receipt Date: 20250213
  Transmission Date: 20250409
  Serious: Yes (Hospitalization)
  Sender: AVADEL CNS PHARMACEUTICALS, LLC
  Company Number: US-AVADEL CNS PHARMACEUTICALS, LLC-2024AVA02523

PATIENT
  Sex: Female

DRUGS (13)
  1. LUMRYZ [Suspect]
     Active Substance: SODIUM OXYBATE
     Indication: Narcolepsy
     Dosage: 7.5 G, ONCE NIGHTLY AT BEDTIME
     Route: 048
     Dates: start: 2024
  2. ELIQUIS [Concomitant]
     Active Substance: APIXABAN
     Dosage: 5 MG (1 TABLET) IN THE MORNING AND 5 MG (1 TABLET) BEFORE BEDTIME
     Route: 048
  3. BENTYL [Concomitant]
     Active Substance: DICYCLOMINE HYDROCHLORIDE
     Dosage: 20 MG (1 TABLET), 4X/DAY
     Route: 048
  4. CYMBALTA [Concomitant]
     Active Substance: DULOXETINE HYDROCHLORIDE
     Dosage: 60 MG (1 CAPSULE), 1X/DAY
     Route: 048
  5. WIXELA INHUB [Concomitant]
     Active Substance: FLUTICASONE PROPIONATE\SALMETEROL XINAFOATE
     Dosage: 250/50 ?G (1 PUFF) IN THE MORNING AND 250/50 ?G (1 PUFF) IN THE EVENING
  6. LASIX [Concomitant]
     Active Substance: FUROSEMIDE
     Dosage: 20 MG (1 TABLET) IN THE MORNING AND 20 MG (1 TABLET) BEFORE BEDTIME
     Route: 048
  7. NEURONTIN [Concomitant]
     Active Substance: GABAPENTIN
     Dosage: 600 MG (1 TABLET) IN THE MORNING AND 1200 MG (2 TABLETS) EVERY NIGHT
     Route: 048
  8. NOVOLOG [Concomitant]
     Active Substance: INSULIN ASPART
     Dosage: 0.03-0.12 ML (3-12 UNITS) IN THE MORNING, 0.03-0.12 ML (3-12 UNITS) AT NOON, AND 0.03-0.12 ML (3-12
     Route: 058
  9. LEVEMIR [Concomitant]
     Active Substance: INSULIN DETEMIR
     Dosage: 0.15 ML (15 UNITS) IN THE MORNING AND 0.15 ML (15 UNITS) BEFORE BEDTIME
     Route: 058
  10. ZENPEP [Concomitant]
     Active Substance: PANCRELIPASE AMYLASE\PANCRELIPASE LIPASE\PANCRELIPASE PROTEASE
     Route: 048
  11. PROTONIX [Concomitant]
     Active Substance: PANTOPRAZOLE SODIUM
     Dosage: 40 MG (1 TABLET), 1X/DAY BEFORE BREAKFAST
     Route: 048
  12. SUNOSI [Concomitant]
     Active Substance: SOLRIAMFETOL
     Dosage: 150 MG (1 TABLET), 1X/DAY
     Route: 048
  13. TOPAMAX [Concomitant]
     Active Substance: TOPIRAMATE
     Dosage: 50 MG (1 TABLET) EVERY NIGHT
     Route: 048

REACTIONS (5)
  - Pancreatitis acute [Recovering/Resolving]
  - Insomnia [Not Recovered/Not Resolved]
  - Blood pressure increased [Not Recovered/Not Resolved]
  - Paraesthesia [Not Recovered/Not Resolved]
  - Pain in extremity [Not Recovered/Not Resolved]

NARRATIVE: CASE EVENT DATE: 20240101
